FAERS Safety Report 13137730 (Version 3)
Quarter: 2017Q1

REPORT INFORMATION
  Report Type: Spontaneous
  Country: US (occurrence: US)
  Receive Date: 20170123
  Receipt Date: 20170123
  Transmission Date: 20170428
  Serious: No
  Sender: FDA-Public Use
  Company Number: US-UNITED THERAPEUTICS-UNT-2016-013296

PATIENT
  Sex: Female

DRUGS (2)
  1. ORENITRAM [Suspect]
     Active Substance: TREPROSTINIL
     Indication: PULMONARY ARTERIAL HYPERTENSION
     Dosage: 0.125 MG, TID
     Route: 048
     Dates: start: 20160315
  2. ADCIRCA [Suspect]
     Active Substance: TADALAFIL
     Indication: PRODUCT USED FOR UNKNOWN INDICATION

REACTIONS (4)
  - Paraesthesia [Unknown]
  - Hypoaesthesia [Unknown]
  - Erythema [Unknown]
  - Chest discomfort [Unknown]

NARRATIVE: CASE EVENT DATE: 20160812
